FAERS Safety Report 9298703 (Version 1)
Quarter: 2013Q2

REPORT INFORMATION
  Report Type: Spontaneous
  Country: JP (occurrence: None)
  Receive Date: 20130515
  Receipt Date: 20130515
  Transmission Date: 20140414
  Serious: Yes (Hospitalization)
  Sender: FDA-Public Use
  Company Number: INT_00259_2013

PATIENT
  Age: 5 Year
  Sex: Male
  Weight: 18 kg

DRUGS (1)
  1. CEFTRIAXON [Suspect]
     Indication: OTITIS MEDIA
     Route: 030
     Dates: start: 20130403

REACTIONS (3)
  - Face oedema [None]
  - Flushing [None]
  - Vomiting [None]
